FAERS Safety Report 16728389 (Version 1)
Quarter: 2019Q3

REPORT INFORMATION
  Report Type: Spontaneous
  Country: US (occurrence: US)
  Receive Date: 20190704
  Receipt Date: 20190704
  Transmission Date: 20191005
  Serious: Yes (Hospitalization)
  Sender: FDA-Public Use
  Company Number: None

PATIENT
  Age: 81 Year
  Sex: Male

DRUGS (1)
  1. ELTROMBOPAG [Suspect]
     Active Substance: ELTROMBOPAG
     Indication: THROMBOCYTOPENIA
     Route: 048
     Dates: start: 20190208, end: 20190323

REACTIONS (3)
  - Deep vein thrombosis [None]
  - Platelet count decreased [None]
  - Pulmonary embolism [None]

NARRATIVE: CASE EVENT DATE: 20190323
